FAERS Safety Report 17467545 (Version 4)
Quarter: 2021Q4

REPORT INFORMATION
  Report Type: Spontaneous
  Country: GB (occurrence: GB)
  Receive Date: 20200227
  Receipt Date: 20211019
  Transmission Date: 20220303
  Serious: Yes (Other)
  Sender: FDA-Public Use
  Company Number: GB-PFIZER INC-2020081265

PATIENT
  Age: 70 Year
  Sex: Male

DRUGS (11)
  1. LATANOPROST [Suspect]
     Active Substance: LATANOPROST
     Dosage: UNK (AT NIGHT)
     Route: 047
  2. LATANOPROST [Suspect]
     Active Substance: LATANOPROST
     Dosage: UNK
     Route: 047
  3. DORZOLAMIDE\TIMOLOL [Concomitant]
     Active Substance: DORZOLAMIDE\TIMOLOL
     Indication: Ocular hypertension
     Dosage: UNK UNK, 2X/DAY (FIXED DOSE COMBINATION)
     Route: 047
  4. DORZOLAMIDE\TIMOLOL [Concomitant]
     Active Substance: DORZOLAMIDE\TIMOLOL
     Dosage: UNK (FIXED DOSE COMBINATION)
     Route: 047
  5. BRIMONIDINE [Concomitant]
     Active Substance: BRIMONIDINE TARTRATE
     Indication: Ocular hypertension
     Dosage: UNK UNK, 2X/DAY
     Route: 047
  6. METHYLPREDNISOLONE [Concomitant]
     Active Substance: METHYLPREDNISOLONE
     Indication: Endocrine ophthalmopathy
     Dosage: 1.5 G, UNK
     Route: 042
  7. METHOTREXATE [Concomitant]
     Active Substance: METHOTREXATE
     Indication: Idiopathic orbital inflammation
     Dosage: 7.5 MG, WEEKLY
     Route: 048
  8. FOLIC ACID [Concomitant]
     Active Substance: FOLIC ACID
     Indication: Idiopathic orbital inflammation
     Dosage: 5 MG, DAILY
  9. ACETAZOLAMIDE [Concomitant]
     Active Substance: ACETAZOLAMIDE
     Indication: Ocular hypertension
     Dosage: 25 MG, 2X/DAY
  10. SODIUM HYALURONATE [Concomitant]
     Active Substance: HYALURONATE SODIUM
     Indication: Ophthalmologic treatment
     Dosage: UNK (0.2% EVERY 2 HOURS)
     Route: 061
  11. LACRILUBE [Concomitant]
     Indication: Ophthalmologic treatment
     Dosage: UNK (OINTMENT AT NIGHT)
     Route: 061

REACTIONS (4)
  - Prostaglandin analogue periorbitopathy [Unknown]
  - Therapeutic response unexpected [Unknown]
  - Pre-existing condition improved [Unknown]
  - Drug intolerance [Unknown]
